FAERS Safety Report 13873233 (Version 2)
Quarter: 2020Q3

REPORT INFORMATION
  Report Type: Spontaneous
  Country: AU (occurrence: AU)
  Receive Date: 20170816
  Receipt Date: 20200920
  Transmission Date: 20201102
  Serious: Yes (Death, Hospitalization, Other)
  Sender: FDA-Public Use
  Company Number: PHHY2017AU119219

PATIENT
  Age: 55 Year
  Sex: Female

DRUGS (10)
  1. ZOLEDRONATE [Suspect]
     Active Substance: ZOLEDRONIC ACID
     Indication: PRODUCT USED FOR UNKNOWN INDICATION
     Dosage: UNK UNK, QMO
     Route: 065
  2. ADRIAMYCIN [Concomitant]
     Active Substance: DOXORUBICIN HYDROCHLORIDE
     Indication: METASTASES TO LIVER
     Dosage: UNK
     Route: 065
  3. SANDOSTATIN LAR DEPOT [Suspect]
     Active Substance: OCTREOTIDE ACETATE
     Indication: PANCREATIC NEUROENDOCRINE TUMOUR
     Dosage: 10 MG, QMO (MONTHLY)
     Route: 065
     Dates: start: 2007
  4. DOXORUBICIN [Concomitant]
     Active Substance: DOXORUBICIN
     Indication: PRODUCT USED FOR UNKNOWN INDICATION
     Dosage: UNK
     Route: 065
  5. LUMARK [LUTETIUM (177) CHLORIDE] [Suspect]
     Active Substance: LUTETIUM CHLORIDE LU-177
     Indication: PRODUCT USED FOR UNKNOWN INDICATION
     Dosage: UNK
     Route: 065
  6. SANDOSTATIN LAR DEPOT [Suspect]
     Active Substance: OCTREOTIDE ACETATE
     Dosage: 30 MG, UNK
     Route: 065
     Dates: start: 201002
  7. CAPECITABINE. [Suspect]
     Active Substance: CAPECITABINE
     Indication: PRODUCT USED FOR UNKNOWN INDICATION
     Dosage: UNK
     Route: 065
  8. EVEROLIMUS. [Suspect]
     Active Substance: EVEROLIMUS
     Indication: PRODUCT USED FOR UNKNOWN INDICATION
     Dosage: 10 MG, QD
     Route: 065
  9. SANDOSTATIN LAR DEPOT [Suspect]
     Active Substance: OCTREOTIDE ACETATE
     Dosage: 20 MG, UNK
     Route: 065
     Dates: start: 200909
  10. MITOMYCIN C [Concomitant]
     Active Substance: MITOMYCIN
     Indication: METASTASES TO LIVER
     Dosage: UNK
     Route: 065

REACTIONS (14)
  - Blood chromogranin A increased [Unknown]
  - Blood glucose increased [Unknown]
  - Malignant neoplasm progression [Recovering/Resolving]
  - Pain [Unknown]
  - Decreased appetite [Unknown]
  - Bone pain [Unknown]
  - Back pain [Recovered/Resolved]
  - Cachexia [Unknown]
  - Metastases to bone [Recovering/Resolving]
  - Metastases to spine [Unknown]
  - Death [Fatal]
  - Spinal pain [Unknown]
  - Upper gastrointestinal haemorrhage [Unknown]
  - Gastric antral vascular ectasia [Unknown]

NARRATIVE: CASE EVENT DATE: 200807
